FAERS Safety Report 9507555 (Version 1)
Quarter: 2013Q1

REPORT INFORMATION
  Report Type: Spontaneous
  Country: US (occurrence: None)
  Receive Date: 20130305
  Receipt Date: 20130305
  Transmission Date: 20140127
  Serious: Yes (Other)
  Sender: FDA-Public Use
  Company Number: 163-20785-12070595

PATIENT
  Age: 64 Year
  Sex: Female

DRUGS (4)
  1. THALOMID [Suspect]
     Indication: PLASMA CELL MYELOMA
     Dosage: 50 MG, SUN-TU-THU-SAT., PO
     Route: 048
     Dates: start: 20100504, end: 20111216
  2. REVLIMID (LENALIDOMIDE) (CAPSULES) [Suspect]
     Indication: PLASMA CELL MYELOMA
     Route: 048
     Dates: start: 20071115, end: 200907
  3. DEXAMETHASONE [Suspect]
     Indication: PLASMA CELL MYELOMA
     Route: 048
  4. VELCADE [Suspect]
     Indication: PLASMA CELL MYELOMA

REACTIONS (6)
  - Skin exfoliation [None]
  - Erythema [None]
  - Pruritus [None]
  - Muscle spasms [None]
  - Bone lesion [None]
  - Neuropathy peripheral [None]
